FAERS Safety Report 8525243 (Version 2)
Quarter: 2013Q1

REPORT INFORMATION
  Report Type: Spontaneous
  Country: FR (occurrence: FR)
  Receive Date: 20120423
  Receipt Date: 20130111
  Transmission Date: 20140127
  Serious: Yes (Life-Threatening, Hospitalization)
  Sender: FDA-Public Use
  Company Number: PHHY2012FR033279

PATIENT
  Age: 85 Year
  Sex: Female
  Weight: 56 kg

DRUGS (7)
  1. ZOMETA [Suspect]
     Indication: METASTASES TO BONE
     Dosage: 4 MG, EVERY 21 DAYS
     Dates: start: 201001
  2. ZOMETA [Suspect]
     Dosage: 4 MG, EVERY 28 DAYS
     Dates: start: 201109
  3. ZOMETA [Suspect]
     Dosage: 3 MG
     Dates: start: 201201
  4. FASLODEX [Concomitant]
     Dosage: UNK
  5. DIFFU K [Concomitant]
     Dosage: UNK
  6. TRAMADOL [Concomitant]
     Dosage: UNK
  7. LASILIX [Concomitant]
     Dosage: UNK

REACTIONS (10)
  - Renal tubular disorder [Unknown]
  - Renal failure acute [Recovering/Resolving]
  - Urine output decreased [Unknown]
  - Local swelling [Unknown]
  - Metabolic acidosis [Recovered/Resolved]
  - Hyperkalaemia [Recovered/Resolved]
  - Anuria [Unknown]
  - Renal tubular necrosis [Unknown]
  - Confusional state [Unknown]
  - Dyspnoea [Unknown]
